FAERS Safety Report 25477771 (Version 1)
Quarter: 2025Q2

REPORT INFORMATION
  Report Type: Spontaneous
  Country: JP (occurrence: JP)
  Receive Date: 20250625
  Receipt Date: 20250625
  Transmission Date: 20250717
  Serious: Yes (Hospitalization)
  Sender: SUNOVION
  Company Number: JP-SMPA-2025SPA007866AA

PATIENT

DRUGS (3)
  1. VIBEGRON [Suspect]
     Active Substance: VIBEGRON
     Indication: Hypertonic bladder
     Route: 048
     Dates: start: 20250425, end: 20250519
  2. AMLODIPINE [Concomitant]
     Active Substance: AMLODIPINE BESYLATE
     Dosage: 5 MG, QD
     Route: 048
     Dates: start: 20240716
  3. CELECOXIB [Concomitant]
     Active Substance: CELECOXIB
     Dosage: 1000 MG, QD
     Route: 048
     Dates: start: 20240716

REACTIONS (1)
  - Jaundice cholestatic [Unknown]

NARRATIVE: CASE EVENT DATE: 20250519
